FAERS Safety Report 9305629 (Version 7)
Quarter: 2013Q2

REPORT INFORMATION
  Report Type: Spontaneous
  Country: US (occurrence: US)
  Receive Date: 20130523
  Receipt Date: 20130628
  Transmission Date: 20140414
  Serious: Yes (Other)
  Sender: FDA-Public Use
  Company Number: US-VERTEX PHARMACEUTICALS INC-2013-006165

PATIENT
  Age: 62 Year
  Sex: Female
  Weight: 104 kg

DRUGS (15)
  1. INCIVEK [Suspect]
     Indication: HEPATITIS C
     Dosage: 750 MG, TID
     Route: 048
     Dates: start: 20130418
  2. PEGASYS [Suspect]
     Indication: HEPATITIS C
     Dosage: 180 ?G, WEEKLY
     Route: 058
     Dates: start: 20130418
  3. RIBAVIRIN [Suspect]
     Indication: HEPATITIS C
     Dosage: 1000 MG, QD
     Dates: start: 20130418
  4. RIBAVIRIN [Suspect]
     Dosage: 400 MG, BID
     Dates: start: 20130508
  5. RIBAVIRIN [Suspect]
     Dosage: 600 MG, QD
     Dates: start: 20130517
  6. RIBAVIRIN [Suspect]
     Dosage: 400 MG, BID
     Route: 048
  7. RIBAVIRIN [Suspect]
     Dosage: 200 MG, BID
     Dates: start: 201305
  8. RIBAVIRIN [Suspect]
     Dosage: 200 MG, QD
     Route: 048
  9. NORVASC [Concomitant]
     Indication: HYPERTENSION
  10. METOPROLOL [Concomitant]
     Indication: HYPERTENSION
     Dosage: 150 MG, QD
     Dates: end: 20130517
  11. CYCLOSPORINE [Concomitant]
     Indication: LIVER TRANSPLANT
     Dosage: 25 MG, QD
     Dates: end: 20130517
  12. WELLBUTRIN [Concomitant]
     Indication: DEPRESSION
     Dosage: UNK, QD
     Route: 048
  13. MYFORTIC [Concomitant]
  14. CIPRO [Concomitant]
     Dosage: 1 DF, QD
     Dates: start: 201304, end: 20130603
  15. MULTIVITAMINS [Concomitant]

REACTIONS (18)
  - Anaemia [Not Recovered/Not Resolved]
  - Blood test abnormal [Not Recovered/Not Resolved]
  - Hypotension [Not Recovered/Not Resolved]
  - Dyspnoea exertional [Recovered/Resolved]
  - Weight decreased [Not Recovered/Not Resolved]
  - Decreased appetite [Not Recovered/Not Resolved]
  - Dry mouth [Not Recovered/Not Resolved]
  - Mastication disorder [Not Recovered/Not Resolved]
  - Malaise [Recovered/Resolved]
  - Off label use [Unknown]
  - Asthenia [Not Recovered/Not Resolved]
  - Fatigue [Recovered/Resolved]
  - Rash [Not Recovered/Not Resolved]
  - Skin exfoliation [Unknown]
  - Anorectal discomfort [Not Recovered/Not Resolved]
  - Diarrhoea [Not Recovered/Not Resolved]
  - Pruritus [Unknown]
  - Nausea [Not Recovered/Not Resolved]
